FAERS Safety Report 5581126-6 (Version None)
Quarter: 2007Q4

REPORT INFORMATION
  Report Type: 
  Country: None (occurrence: None)
  Receive Date: 20071228
  Receipt Date: 20071220
  Transmission Date: 20080405
  Serious: Yes (Other)
  Sender: FDA-Public Use
  Company Number: 2007338177

PATIENT
  Sex: Female

DRUGS (1)
  1. BENGAY PAIN RELIEVING PATCH (MENTHOL) [Suspect]
     Indication: PAIN
     Dosage: UNSPECIFIED, TRANSDERMAL
     Route: 062

REACTIONS (1)
  - HEART RATE IRREGULAR [None]
